FAERS Safety Report 12979340 (Version 1)
Quarter: 2016Q4

REPORT INFORMATION
  Report Type: Spontaneous
  Country: US (occurrence: US)
  Receive Date: 20161128
  Receipt Date: 20161128
  Transmission Date: 20170207
  Serious: No
  Sender: FDA-Public Use
  Company Number: US-GLAXOSMITHKLINE-US2016173597

PATIENT
  Sex: Male

DRUGS (4)
  1. COMBIVENT RESPIMAT [Concomitant]
     Active Substance: ALBUTEROL SULFATE\IPRATROPIUM BROMIDE
  2. ALBUTEROL NEBULISER SOLUTION [Concomitant]
     Active Substance: ALBUTEROL SULFATE
  3. BREO ELLIPTA [Suspect]
     Active Substance: FLUTICASONE FUROATE\VILANTEROL TRIFENATATE
     Indication: CHRONIC OBSTRUCTIVE PULMONARY DISEASE
     Dosage: UNK
     Route: 055
     Dates: start: 20161121
  4. VENTOLIN [Concomitant]
     Active Substance: ALBUTEROL SULFATE

REACTIONS (1)
  - Drug ineffective for unapproved indication [Unknown]
